FAERS Safety Report 7467125-8 (Version None)
Quarter: 2011Q2

REPORT INFORMATION
  Report Type: 
  Country: None (occurrence: None)
  Receive Date: 20110509
  Receipt Date: 20101025
  Transmission Date: 20111010
  Serious: No
  Sender: FDA-Public Use
  Company Number: US-ALEXION-A201001357

PATIENT
  Sex: Male

DRUGS (6)
  1. SOLIRIS [Suspect]
     Dosage: 900 MG, Q2W
     Route: 042
     Dates: start: 20100329
  2. LOVENOX [Concomitant]
     Indication: ANTICOAGULANT THERAPY
     Dosage: UNK
  3. FLOMAX [Concomitant]
     Dosage: UNK
  4. ROZEREM [Concomitant]
     Dosage: UNK
  5. SOLIRIS [Suspect]
     Indication: PAROXYSMAL NOCTURNAL HAEMOGLOBINURIA
     Dosage: 600 MG, QW
     Route: 042
     Dates: start: 20100301, end: 20100322
  6. COUMADIN [Suspect]
     Indication: ANTICOAGULANT THERAPY

REACTIONS (2)
  - DIARRHOEA HAEMORRHAGIC [None]
  - DIARRHOEA [None]
